FAERS Safety Report 15759831 (Version 1)
Quarter: 2018Q4

REPORT INFORMATION
  Report Type: Spontaneous
  Country: FR (occurrence: FR)
  Receive Date: 20181226
  Receipt Date: 20181226
  Transmission Date: 20190205
  Serious: Yes (Hospitalization, Other)
  Sender: FDA-Public Use
  Company Number: FR-BRISTOL-MYERS SQUIBB COMPANY-BMS-2018-118526

PATIENT
  Age: 66 Year
  Sex: Female
  Weight: 62.5 kg

DRUGS (4)
  1. COUMADINE [Suspect]
     Active Substance: WARFARIN SODIUM
     Indication: CARDIAC DISORDER
     Dosage: 4 MG,DRUG INTERVAL DOSAGE UNIT NUMBER ^^1 DAY^^
     Route: 048
     Dates: start: 20180808, end: 20181107
  2. VALSARTAN. [Concomitant]
     Active Substance: VALSARTAN
     Indication: PRODUCT USED FOR UNKNOWN INDICATION
     Dosage: 80 MG,DRUG INTERVAL DOSAGE UNIT NUMBER ^^1 DAY^^
     Route: 048
  3. HYDROCHLOROTHIAZIDE. [Concomitant]
     Active Substance: HYDROCHLOROTHIAZIDE
     Indication: PRODUCT USED FOR UNKNOWN INDICATION
     Dosage: 12.5 MG, DRUG INTERVAL DOSAGE UNIT NUMBER ^^1 DAY^^
     Route: 048
  4. PRAVASTATINE                       /00880401/ [Concomitant]
     Active Substance: PRAVASTATIN
     Indication: CARDIAC DISORDER
     Dosage: 40 MG, DRUG INTERVAL DOSAGE UNIT NUMBER ^^1 DAY^^
     Route: 048

REACTIONS (2)
  - Blue toe syndrome [Recovered/Resolved]
  - Acute kidney injury [Recovering/Resolving]

NARRATIVE: CASE EVENT DATE: 20181108
